FAERS Safety Report 25125200 (Version 3)
Quarter: 2025Q2

REPORT INFORMATION
  Report Type: Report from Study
  Country: BR (occurrence: BR)
  Receive Date: 20250326
  Receipt Date: 20250409
  Transmission Date: 20250716
  Serious: Yes (Hospitalization, Other)
  Sender: BIOGEN
  Company Number: BR-BIOGEN-2025BI01304982

PATIENT
  Sex: Male
  Weight: 110 kg

DRUGS (2)
  1. TYSABRI [Suspect]
     Active Substance: NATALIZUMAB
     Indication: Multiple sclerosis
     Route: 050
     Dates: start: 202012
  2. TYSABRI [Suspect]
     Active Substance: NATALIZUMAB
     Route: 050
     Dates: start: 202012

REACTIONS (17)
  - Spinal fusion surgery [Unknown]
  - Myelopathy [Unknown]
  - Cardiomegaly [Not Recovered/Not Resolved]
  - Spinal cord disorder [Unknown]
  - Brain stem syndrome [Unknown]
  - Neuromyelitis optica spectrum disorder [Unknown]
  - Pain [Unknown]
  - Balance disorder [Unknown]
  - Asthenia [Unknown]
  - Dengue fever [Recovered/Resolved]
  - Cognitive disorder [Unknown]
  - Spinal cord compression [Unknown]
  - Paraparesis [Unknown]
  - Cervical cord compression [Unknown]
  - Cervical spinal stenosis [Unknown]
  - Primary progressive multiple sclerosis [Unknown]
  - Off label use [Not Recovered/Not Resolved]

NARRATIVE: CASE EVENT DATE: 20200101
